FAERS Safety Report 4661672-X (Version None)
Quarter: 2005Q2

REPORT INFORMATION
  Report Type: 
  Country: None (occurrence: None)
  Receive Date: 20050513
  Receipt Date: 20050415
  Transmission Date: 20051028
  Serious: Yes (Hospitalization)
  Sender: FDA-Public Use
  Company Number: US-BRISTOL-MYERS SQUIBB COMPANY-12934642

PATIENT
  Age: 59 Year
  Sex: Female
  Weight: 56 kg

DRUGS (8)
  1. CETUXIMAB [Suspect]
     Indication: COLON CANCER
     Dosage: 1ST DOSE, REC'D 680 MG. CYCLE 1 GIVEN AT 400 MG/M2 DAY 1, 250 MG/M2 DAY 8. CYCLE=2 WEEKS.
     Route: 042
     Dates: start: 20050411, end: 20050411
  2. FLUOROURACIL [Suspect]
     Indication: COLON CANCER
     Dosage: CYCLE 1, REC'D 680 MG PLUS 2400 MG/M2 OVER 46-48 HOURS (TOTAL DOSE 4080 MG). GIVEN 1 PER 1 CYCLE.
     Route: 042
     Dates: start: 20050411, end: 20050411
  3. OXALIPLATIN [Suspect]
     Indication: COLON CANCER
     Dosage: CYCLE 1, REC'D 145 MG. GIVEN DAY 1 (CYCLE = 2 WEEKS).
     Route: 042
     Dates: start: 20050411, end: 20050411
  4. LEUCOVORIN CALCIUM [Suspect]
     Indication: COLON CANCER
     Dosage: CYCLE 1 REC'D 680 MG, GIVEN DAY 1 (CYCLE = 2 WEEKS).
     Route: 042
     Dates: start: 20050411, end: 20050411
  5. ASPIRIN [Suspect]
  6. ALOXI [Concomitant]
  7. BENADRYL [Concomitant]
  8. LORAZEPAM [Concomitant]

REACTIONS (3)
  - COLONIC HAEMORRHAGE [None]
  - LARGE INTESTINAL ULCER [None]
  - SUBARACHNOID HAEMORRHAGE [None]
